FAERS Safety Report 4616518-2 (Version None)
Quarter: 2005Q1

REPORT INFORMATION
  Report Type: 
  Country: None (occurrence: None)
  Receive Date: 20050318
  Receipt Date: 20050307
  Transmission Date: 20050727
  Serious: Yes (Hospitalization)
  Sender: FDA-Public Use
  Company Number: US-2005-003246

PATIENT
  Age: 24 Year
  Sex: Female
  Weight: 56.7 kg

DRUGS (4)
  1. TRI-LEVLIN 21 [Suspect]
     Dosage: 1 TAB(S), 1X/DAY, ORAL
     Route: 048
     Dates: start: 20040101, end: 20041115
  2. ISOTRETINOIN [Suspect]
     Indication: ACNE
     Dosage: 10 MG,2X/DAY QOD,ORAL
     Route: 048
     Dates: start: 20041030, end: 20041115
  3. ISOTRETINOIN (SOTRET) (ISOTRETINOIN) [Suspect]
     Indication: ACNE
     Dosage: SEE IMAGE
     Dates: start: 20041030, end: 20041115
  4. ISOTRETINOIN (SOTRET) (ISOTRETINOIN) [Suspect]
     Indication: ACNE
     Dosage: SEE IMAGE

REACTIONS (2)
  - SUBCLAVIAN VEIN THROMBOSIS [None]
  - THORACIC OUTLET SYNDROME [None]
